FAERS Safety Report 12419551 (Version 1)
Quarter: 2016Q2

REPORT INFORMATION
  Report Type: Report from Study
  Country: US (occurrence: US)
  Receive Date: 20160531
  Receipt Date: 20160531
  Transmission Date: 20160815
  Serious: Yes (Hospitalization)
  Sender: FDA-Public Use
  Company Number: US-ABBVIE-16K-163-1637200-00

PATIENT
  Age: 33 Year
  Sex: Male
  Weight: 59.02 kg

DRUGS (2)
  1. HUMIRA [Suspect]
     Active Substance: ADALIMUMAB
     Route: 058
     Dates: start: 2011, end: 20160213
  2. HUMIRA [Suspect]
     Active Substance: ADALIMUMAB
     Indication: ANKYLOSING SPONDYLITIS
     Route: 058
     Dates: start: 2011, end: 2011

REACTIONS (5)
  - White matter lesion [Recovering/Resolving]
  - Speech disorder [Recovering/Resolving]
  - Hemiplegia [Recovering/Resolving]
  - Balance disorder [Recovering/Resolving]
  - Noninfective encephalitis [Recovering/Resolving]

NARRATIVE: CASE EVENT DATE: 201602
